FAERS Safety Report 24299803 (Version 1)
Quarter: 2024Q3

REPORT INFORMATION
  Report Type: Spontaneous
  Country: JP (occurrence: JP)
  Receive Date: 20240909
  Receipt Date: 20240909
  Transmission Date: 20241017
  Serious: Yes (Death, Other)
  Sender: AMERICAN REGENT
  Company Number: JP-AMERICAN REGENT INC-2024003420

PATIENT
  Age: 93 Year
  Sex: Female

DRUGS (4)
  1. FERINJECT [Suspect]
     Active Substance: FERRIC CARBOXYMALTOSE
     Indication: Iron deficiency anaemia
     Dosage: 500 MILLIGRAM
     Dates: start: 20240705, end: 20240705
  2. FERINJECT [Suspect]
     Active Substance: FERRIC CARBOXYMALTOSE
     Dosage: 1500 MILLIGRAM
     Dates: start: 20240712, end: 20240712
  3. IRON SUCROSE [Concomitant]
     Active Substance: IRON SUCROSE
     Indication: Iron deficiency anaemia
     Dosage: 40 MILLIGRAM (1 AMPULE)
     Route: 042
     Dates: start: 20240709, end: 20240709
  4. IRON SUCROSE [Concomitant]
     Active Substance: IRON SUCROSE
     Dosage: 40 MILLIGRAM (1 AMPULE)
     Route: 042
     Dates: start: 20240710, end: 20240710

REACTIONS (3)
  - Serum ferritin increased [Unknown]
  - Pneumonia aspiration [Fatal]
  - Overdose [Unknown]

NARRATIVE: CASE EVENT DATE: 20240701
